FAERS Safety Report 13443083 (Version 1)
Quarter: 2017Q2

REPORT INFORMATION
  Report Type: Spontaneous
  Country: US (occurrence: US)
  Receive Date: 20170414
  Receipt Date: 20170414
  Transmission Date: 20170830
  Serious: Yes (Other)
  Sender: FDA-Public Use
  Company Number: US-OTSUKA-2016_022490

PATIENT
  Age: 28 Year
  Sex: Male

DRUGS (4)
  1. DEPAKOTE [Concomitant]
     Active Substance: DIVALPROEX SODIUM
     Indication: PRODUCT USED FOR UNKNOWN INDICATION
     Dosage: 500 MG, UNK
     Route: 065
  2. ABILIFY MAINTENA [Suspect]
     Active Substance: ARIPIPRAZOLE
     Indication: DEPRESSION
     Dosage: 300 MG, UNK
     Route: 030
     Dates: start: 201604, end: 201605
  3. TOPROL XL [Concomitant]
     Active Substance: METOPROLOL SUCCINATE
     Indication: PRODUCT USED FOR UNKNOWN INDICATION
     Dosage: UNK
     Route: 065
  4. ABILIFY MAINTENA [Suspect]
     Active Substance: ARIPIPRAZOLE
     Indication: BIPOLAR II DISORDER
     Dosage: 400 MG, UNK
     Route: 030
     Dates: start: 201503

REACTIONS (13)
  - Renal failure [Unknown]
  - Blood creatinine increased [Unknown]
  - Nephritis [Unknown]
  - Cardiac disorder [Unknown]
  - Renal disorder [Unknown]
  - Muscle spasms [Unknown]
  - Adrenal disorder [Unknown]
  - Migraine [Unknown]
  - Hypertension [Recovering/Resolving]
  - Off label use [Unknown]
  - Pain [Unknown]
  - Hypersensitivity [Unknown]
  - Headache [Unknown]

NARRATIVE: CASE EVENT DATE: 201503
